FAERS Safety Report 10477544 (Version 1)
Quarter: 2014Q3

REPORT INFORMATION
  Report Type: Spontaneous
  Country: US (occurrence: None)
  Receive Date: 20140925
  Receipt Date: 20140925
  Transmission Date: 20150326
  Serious: Yes (Hospitalization)
  Sender: FDA-Public Use
  Company Number: None

PATIENT
  Age: 67 Year
  Sex: Male
  Weight: 83 kg

DRUGS (3)
  1. BEVACIZUMAB [Suspect]
     Active Substance: BEVACIZUMAB
     Indication: PROSTATE CANCER
     Dosage: 15 MG/KG, Q. 3 WEEKS, IV?
     Route: 042
     Dates: start: 20140311, end: 20140819
  2. RAD 001 [Suspect]
     Active Substance: EVEROLIMUS
     Indication: PROSTATE CANCER
     Route: 048
     Dates: start: 20140311, end: 20140904
  3. DOCETAXEL [Suspect]
     Active Substance: DOCETAXEL
     Indication: PROSTATE CANCER
     Route: 042
     Dates: start: 20140311, end: 20140819

REACTIONS (7)
  - Narcotic bowel syndrome [None]
  - Abdominal pain [None]
  - Constipation [None]
  - Abdominal distension [None]
  - Hypokalaemia [None]
  - Intestinal obstruction [None]
  - Waist circumference increased [None]

NARRATIVE: CASE EVENT DATE: 20140905
